FAERS Safety Report 18351390 (Version 1)
Quarter: 2020Q4

REPORT INFORMATION
  Report Type: Spontaneous
  Country: TR (occurrence: TR)
  Receive Date: 20201006
  Receipt Date: 20201006
  Transmission Date: 20210114
  Serious: Yes (Death, Hospitalization, Other)
  Sender: FDA-Public Use
  Company Number: TR-VIIV HEALTHCARE LIMITED-TR2020GSK190420

PATIENT
  Age: 42 Year
  Sex: Male

DRUGS (3)
  1. DOLUTEGRAVIR [Suspect]
     Active Substance: DOLUTEGRAVIR
     Indication: HIV INFECTION
     Dosage: UNK
  2. EMTRICITABINE [Suspect]
     Active Substance: EMTRICITABINE
     Indication: HIV INFECTION
     Dosage: UNK
  3. TRIMETHOPRIM + SULFAMETHOXAZOL [Suspect]
     Active Substance: SULFAMERAZINE SODIUM\TRIMETHOPRIM
     Indication: CEREBRAL TOXOPLASMOSIS
     Dosage: UNK

REACTIONS (10)
  - Speech disorder [Unknown]
  - Paraparesis [Unknown]
  - Central nervous system lesion [Unknown]
  - Hyponatraemia [Unknown]
  - Depressed level of consciousness [Fatal]
  - Neutropenia [Unknown]
  - Treatment noncompliance [Unknown]
  - Condition aggravated [Fatal]
  - General physical health deterioration [Unknown]
  - Respiration abnormal [Fatal]
